FAERS Safety Report 9014229 (Version 1)
Quarter: 2013Q1

REPORT INFORMATION
  Report Type: Report from Study
  Country: US (occurrence: US)
  Receive Date: 20130115
  Receipt Date: 20130115
  Transmission Date: 20140127
  Serious: Yes (Other)
  Sender: FDA-Public Use
  Company Number: US-ABBOTT-13P-163-1033771-00

PATIENT
  Sex: Female
  Weight: 98.97 kg

DRUGS (10)
  1. HUMIRA [Suspect]
     Indication: RHEUMATOID ARTHRITIS
     Dates: start: 2010
  2. METHOTREXATE [Concomitant]
     Indication: RHEUMATOID ARTHRITIS
  3. POTASSIUM [Concomitant]
     Indication: PRODUCT USED FOR UNKNOWN INDICATION
  4. LASIX [Concomitant]
     Indication: HYPERTENSION
  5. NEURONTIN [Concomitant]
     Indication: RESTLESS LEGS SYNDROME
  6. ATENOLOL [Concomitant]
     Indication: HYPERTENSION
  7. CITALOPRAM [Concomitant]
     Indication: DEPRESSION
  8. LISINOPRIL [Concomitant]
     Indication: HYPERTENSION
  9. TERAZOSIN [Concomitant]
     Indication: CARDIAC FAILURE CONGESTIVE
  10. VITAMINS [Concomitant]
     Indication: PRODUCT USED FOR UNKNOWN INDICATION

REACTIONS (4)
  - Bronchitis [Recovered/Resolved]
  - Kidney infection [Recovered/Resolved]
  - Back pain [Recovered/Resolved]
  - Urine odour abnormal [Recovered/Resolved]
